FAERS Safety Report 5599947-2 (Version None)
Quarter: 2008Q1

REPORT INFORMATION
  Report Type: 
  Country: None (occurrence: None)
  Receive Date: 20080123
  Receipt Date: 20080114
  Transmission Date: 20080703
  Serious: Yes (Hospitalization)
  Sender: FDA-Public Use
  Company Number: FR-AVENTIS-200810236FR

PATIENT
  Age: 70 Year
  Sex: Female

DRUGS (6)
  1. RIFADIN [Suspect]
     Indication: DRUG USE FOR UNKNOWN INDICATION
     Route: 048
     Dates: start: 20070718, end: 20070813
  2. CLAVENTIN                          /00973701/ [Suspect]
     Indication: DRUG USE FOR UNKNOWN INDICATION
     Route: 042
     Dates: start: 20070723, end: 20070730
  3. VANCOMYCIN [Suspect]
     Indication: DRUG USE FOR UNKNOWN INDICATION
     Route: 042
     Dates: start: 20070718, end: 20070802
  4. HYPERIUM                           /00939801/ [Concomitant]
     Indication: DRUG USE FOR UNKNOWN INDICATION
  5. LYSANXIA [Concomitant]
     Indication: DRUG USE FOR UNKNOWN INDICATION
  6. INIPOMP                            /01263201/ [Concomitant]
     Indication: DRUG USE FOR UNKNOWN INDICATION

REACTIONS (1)
  - ACUTE GENERALISED EXANTHEMATOUS PUSTULOSIS [None]
